FAERS Safety Report 9549824 (Version 1)
Quarter: 2013Q3

REPORT INFORMATION
  Report Type: Spontaneous
  Country: US (occurrence: US)
  Receive Date: 20130924
  Receipt Date: 20130924
  Transmission Date: 20140515
  Serious: No
  Sender: FDA-Public Use
  Company Number: US-009507513-1210USA006266

PATIENT
  Age: 21 Year
  Sex: Female

DRUGS (1)
  1. MK-8415 [Suspect]
     Indication: CONTRACEPTION
     Dosage: UNK
     Dates: start: 20120827

REACTIONS (1)
  - Drug administered at inappropriate site [Unknown]
